FAERS Safety Report 4910753-1 (Version None)
Quarter: 2006Q1

REPORT INFORMATION
  Report Type: 
  Country: None (occurrence: None)
  Receive Date: 20060214
  Receipt Date: 20060207
  Transmission Date: 20060701
  Serious: Yes (Other)
  Sender: FDA-Public Use
  Company Number: 2006AP00652

PATIENT
  Age: 58 Year
  Sex: Male

DRUGS (1)
  1. OMEPRAL [Suspect]
     Indication: HELICOBACTER INFECTION
     Route: 048

REACTIONS (1)
  - CONVULSION [None]
